FAERS Safety Report 9281770 (Version 2)
Quarter: 2013Q4

REPORT INFORMATION
  Report Type: Spontaneous
  Country: US (occurrence: US)
  Receive Date: 20130510
  Receipt Date: 20131016
  Transmission Date: 20140711
  Serious: Yes (Hospitalization)
  Sender: FDA-Public Use
  Company Number: US-B.I. PHARMACEUTICALS,INC./RIDGEFIELD-2013-BI-13029BP

PATIENT
  Age: 76 Year
  Sex: Male
  Weight: 124.74 kg

DRUGS (8)
  1. PRADAXA [Suspect]
     Indication: ANTICOAGULANT THERAPY
     Dates: start: 20120125, end: 20120305
  2. PRADAXA [Suspect]
     Indication: ATRIAL FIBRILLATION
  3. GLIMEPIRIDE [Concomitant]
     Dosage: 4 MG
     Dates: start: 1995
  4. BENAZEPRIL [Concomitant]
     Dosage: 10 MG
     Dates: start: 1995
  5. TOPROL XL [Concomitant]
     Dosage: 100 MG
     Dates: start: 1998
  6. TERAZOSIN [Concomitant]
     Dosage: 5 MG
     Dates: start: 2009
  7. FUROSEMIDE [Concomitant]
  8. OMEPRAZOLE [Concomitant]

REACTIONS (2)
  - Upper gastrointestinal haemorrhage [Unknown]
  - Iron deficiency anaemia [Unknown]
